FAERS Safety Report 4692921-X (Version None)
Quarter: 2005Q2

REPORT INFORMATION
  Report Type: 
  Country: None (occurrence: None)
  Receive Date: 20050615
  Receipt Date: 20050531
  Transmission Date: 20051028
  Serious: Yes (Other)
  Sender: FDA-Public Use
  Company Number: 2005-0008190

PATIENT
  Age: 49 Year
  Sex: Male
  Weight: 78.5 kg

DRUGS (4)
  1. VIREAD [Suspect]
     Indication: HIV INFECTION
     Dosage: 300 MG, 1 IN 1 D, ORAL
     Route: 048
     Dates: start: 20010905
  2. KALETRA [Concomitant]
  3. DIDANOSINE [Concomitant]
  4. LOPERAMIDE [Concomitant]

REACTIONS (7)
  - ACIDOSIS HYPERCHLORAEMIC [None]
  - FANCONI SYNDROME [None]
  - GLYCOSURIA [None]
  - HAEMATURIA [None]
  - METABOLIC ACIDOSIS [None]
  - RENAL TUBULAR ACIDOSIS [None]
  - URINARY CASTS [None]
